FAERS Safety Report 8033879-5 (Version None)
Quarter: 2012Q1

REPORT INFORMATION
  Report Type: 
  Country: None (occurrence: None)
  Receive Date: 20120110
  Receipt Date: 20120104
  Transmission Date: 20120608
  Serious: No
  Sender: FDA-Public Use
  Company Number: US-PFIZER INC-2012003042

PATIENT
  Sex: Male
  Weight: 93.878 kg

DRUGS (1)
  1. SUTENT [Suspect]
     Indication: LUNG NEOPLASM MALIGNANT
     Dosage: 50 MG, 1X/DAY (1 CAPSULE BY MOUTH EVERY DAY FOR 28 DAYS ON AND 14 DAYS OFF)
     Route: 048
     Dates: start: 20111224

REACTIONS (1)
  - BLISTER [None]
